FAERS Safety Report 20602631 (Version 1)
Quarter: 2022Q1

REPORT INFORMATION
  Report Type: Spontaneous
  Country: US (occurrence: US)
  Receive Date: 20220316
  Receipt Date: 20220316
  Transmission Date: 20220423
  Serious: Yes (Other)
  Sender: FDA-Public Use
  Company Number: US-MACLEODS PHARMACEUTICALS US LTD-MAC2022034803

PATIENT

DRUGS (1)
  1. TRAMADOL [Suspect]
     Active Substance: TRAMADOL
     Indication: Pain in extremity
     Dosage: 50 MILLIGRAM
     Route: 065

REACTIONS (2)
  - Myoclonus [Recovered/Resolved]
  - Muscle twitching [Recovered/Resolved]
